FAERS Safety Report 24059420 (Version 2)
Quarter: 2024Q3

REPORT INFORMATION
  Report Type: Spontaneous
  Country: US (occurrence: US)
  Receive Date: 20240708
  Receipt Date: 20240726
  Transmission Date: 20241016
  Serious: No
  Sender: AMGEN
  Company Number: US-AMGEN-USASP2024131665

PATIENT
  Age: 67 Year
  Sex: Female

DRUGS (2)
  1. PROLIA [Suspect]
     Active Substance: DENOSUMAB
     Indication: Osteopenia
     Dosage: UNK UNK, Q6MO
     Route: 058
     Dates: start: 2021
  2. XANAX [Concomitant]
     Active Substance: ALPRAZOLAM
     Indication: Blood pressure increased
     Dosage: UNK

REACTIONS (10)
  - Post-traumatic neck syndrome [Unknown]
  - Blood pressure increased [Unknown]
  - Neck pain [Not Recovered/Not Resolved]
  - Arthralgia [Not Recovered/Not Resolved]
  - Tendonitis [Unknown]
  - Headache [Unknown]
  - Pain in extremity [Unknown]
  - Off label use [Unknown]
  - Pain [Recovering/Resolving]
  - Muscle tightness [Unknown]

NARRATIVE: CASE EVENT DATE: 20210101
